FAERS Safety Report 7003976-1 (Version None)
Quarter: 2010Q3

REPORT INFORMATION
  Report Type: 
  Country: None (occurrence: None)
  Receive Date: 20100917
  Receipt Date: 20100909
  Transmission Date: 20110219
  Serious: Yes (Death)
  Sender: FDA-Public Use
  Company Number: 2010090026

PATIENT
  Age: 52 Year
  Sex: Male

DRUGS (6)
  1. ONSOLIS [Suspect]
     Indication: CANCER PAIN
     Dosage: SEE IMAGE
     Route: 002
     Dates: start: 20100623
  2. ONSOLIS [Suspect]
     Indication: CANCER PAIN
     Dosage: SEE IMAGE
     Route: 002
     Dates: start: 20100701
  3. ONSOLIS [Suspect]
     Indication: CANCER PAIN
     Dosage: SEE IMAGE
     Route: 002
     Dates: start: 20100801
  4. ONSOLIS [Suspect]
  5. ONSOLIS [Suspect]
  6. FENTANYL-100 [Concomitant]

REACTIONS (1)
  - DEATH [None]
